FAERS Safety Report 8186256-0 (Version None)
Quarter: 2012Q1

REPORT INFORMATION
  Report Type: 
  Country: None (occurrence: None)
  Receive Date: 20120301
  Receipt Date: 20120217
  Transmission Date: 20120608
  Serious: Yes (Other)
  Sender: FDA-Public Use
  Company Number: EU-2011-10240

PATIENT
  Sex: Female
  Weight: 74 kg

DRUGS (10)
  1. SAMSCA [Suspect]
     Indication: HYPONATRAEMIA
     Dosage: 15 MG MILLIGRAM(S), DAILY DOSE, ORAL
     Route: 048
     Dates: start: 20101129, end: 20110930
  2. SAMSCA [Suspect]
     Indication: HYPONATRAEMIA
     Dosage: 15 MG MILLIGRAM(S), DAILY DOSE, ORAL
     Route: 048
     Dates: start: 20111001
  3. CHOLECALCIFEROL (CHOLECALCIFEROL) [Concomitant]
  4. PHENPROCOUMON (PHENPROCOUMON) [Concomitant]
  5. MUTAFLOR (ESCHERICHIA COLI) [Concomitant]
  6. SIMVASTATIN [Concomitant]
  7. RAMIPRIL (RAMIPIRIL) [Concomitant]
  8. DIGITOXIN TAB [Concomitant]
  9. BISOPROLOL FUMARATE [Concomitant]
  10. FOSAMAX [Concomitant]

REACTIONS (8)
  - TACHYCARDIA [None]
  - PROTHROMBIN TIME PROLONGED [None]
  - INSOMNIA [None]
  - INTERNATIONAL NORMALISED RATIO INCREASED [None]
  - TACHYARRHYTHMIA [None]
  - DIZZINESS [None]
  - DYSPEPSIA [None]
  - DECREASED APPETITE [None]
